FAERS Safety Report 23033312 (Version 1)
Quarter: 2023Q4

REPORT INFORMATION
  Report Type: Spontaneous
  Country: US (occurrence: None)
  Receive Date: 20231004
  Receipt Date: 20231004
  Transmission Date: 20240109
  Serious: No
  Sender: FDA-Public Use
  Company Number: None

PATIENT
  Age: 15 Year
  Sex: Female

DRUGS (1)
  1. INJECTAFER [Suspect]
     Active Substance: FERRIC CARBOXYMALTOSE
     Indication: Iron deficiency anaemia

REACTIONS (9)
  - Infusion related reaction [None]
  - Chest discomfort [None]
  - Throat tightness [None]
  - Urticaria [None]
  - Pruritus [None]
  - Feeling hot [None]
  - Feeling abnormal [None]
  - Feeling abnormal [None]
  - Swelling [None]

NARRATIVE: CASE EVENT DATE: 20220511
